FAERS Safety Report 7176372-4 (Version None)
Quarter: 2010Q4

REPORT INFORMATION
  Report Type: 
  Country: None (occurrence: None)
  Receive Date: 20101220
  Receipt Date: 20100819
  Transmission Date: 20110411
  Serious: No
  Sender: FDA-Public Use
  Company Number: US-TYCO HEALTHCARE/MALLINCKRODT-T201001846

PATIENT
  Sex: Male

DRUGS (3)
  1. OPTIMARK [Suspect]
     Indication: ARTHROGRAM
     Dosage: UNK UNK, SINGLE
     Route: 014
     Dates: start: 20100819, end: 20100819
  2. OPTIRAY 160 [Suspect]
     Indication: ARTHROGRAM
     Dosage: UNK, SINGLE
     Route: 014
     Dates: start: 20100819, end: 20100819
  3. SALINE                             /00075401/ [Suspect]
     Indication: ARTHROGRAM
     Dosage: UNK, SINGLE
     Route: 014
     Dates: start: 20100819, end: 20100819

REACTIONS (1)
  - NUCLEAR MAGNETIC RESONANCE IMAGING ABNORMAL [None]
